FAERS Safety Report 15960816 (Version 1)
Quarter: 2019Q1

REPORT INFORMATION
  Report Type: Spontaneous
  Country: US (occurrence: US)
  Receive Date: 20190214
  Receipt Date: 20190214
  Transmission Date: 20190417
  Serious: No
  Sender: FDA-Public Use
  Company Number: US-PFIZER INC-2019057707

PATIENT
  Age: 65 Year
  Sex: Male
  Weight: 84.82 kg

DRUGS (1)
  1. IBRANCE [Suspect]
     Active Substance: PALBOCICLIB
     Indication: DEDIFFERENTIATED LIPOSARCOMA
     Dosage: 125 MG, CYCLIC (ONCE A DAY FOR 21 DAYS AND THEN 7 DAYS OFF)
     Route: 048
     Dates: start: 20181014, end: 20190130

REACTIONS (2)
  - Neoplasm progression [Unknown]
  - Product use in unapproved indication [Unknown]

NARRATIVE: CASE EVENT DATE: 20181014
